FAERS Safety Report 8779674 (Version 1)
Quarter: 2012Q4

REPORT INFORMATION
  Report Type: 
  Country: US (occurrence: US)
  Receive Date: 20120911
  Receipt Date: 20120911
  Transmission Date: 20130627
  Serious: Yes (Other)
  Sender: FDA-Public Use
  Company Number: US-GE HEALTHCARE MEDICAL DIAGNOSTICS-OMPQ-PR-1208S-0902

PATIENT
  Age: 35 Year
  Sex: Male

DRUGS (2)
  1. OMNIPAQUE [Suspect]
     Indication: PRODUCT USED FOR UNKNOWN INDICATION
     Route: 042
     Dates: start: 20120831, end: 20120831
  2. OMNIPAQUE [Suspect]
     Indication: DIAGNOSTIC PROCEDURE

REACTIONS (4)
  - Chest discomfort [Recovering/Resolving]
  - Throat tightness [Recovering/Resolving]
  - Throat tightness [Recovering/Resolving]
  - Urticaria [Recovering/Resolving]
